FAERS Safety Report 24869148 (Version 1)
Quarter: 2025Q1

REPORT INFORMATION
  Report Type: Spontaneous
  Country: US (occurrence: US)
  Receive Date: 20250121
  Receipt Date: 20250121
  Transmission Date: 20250408
  Serious: No
  Sender: PFIZER
  Company Number: US-PFIZER INC-202500010699

PATIENT
  Age: 51 Year
  Sex: Female

DRUGS (1)
  1. PROVERA [Suspect]
     Active Substance: MEDROXYPROGESTERONE ACETATE
     Dosage: 10 MG, 2X/DAY

REACTIONS (3)
  - Hormone level abnormal [Unknown]
  - Off label use [Unknown]
  - Product prescribing issue [Unknown]
